FAERS Safety Report 8600991-9 (Version None)
Quarter: 2012Q3

REPORT INFORMATION
  Report Type: 
  Country: None (occurrence: None)
  Receive Date: 20120817
  Receipt Date: 20120809
  Transmission Date: 20120928
  Serious: Yes (Other)
  Sender: FDA-Public Use
  Company Number: US-BAYER-2012-082648

PATIENT
  Age: 24 Year
  Sex: Female

DRUGS (7)
  1. PREDNISONE TAB [Concomitant]
     Dosage: 5 AND 10 MG ALTERNATING DAILY
     Route: 048
     Dates: start: 20060907
  2. LEVOTHYROXINE SODIUM [Concomitant]
     Dosage: 112 MCG, UNK
     Route: 048
     Dates: start: 20060227, end: 20060809
  3. AMBIEN [Concomitant]
     Dosage: 10 MG, UNK
     Route: 048
     Dates: start: 20060829
  4. LORAZEPAM [Concomitant]
     Dosage: 1 MG, UNK
     Route: 048
     Dates: start: 20060711, end: 20060830
  5. HYDROMORPHONE HYDROCHLORIDE [Concomitant]
     Dosage: 12 MG, UNK
     Route: 048
     Dates: start: 20060908
  6. YASMIN [Suspect]
     Dosage: UNK
  7. PREDNISONE TAB [Concomitant]
     Dosage: 5 MG AND 10 MG ALTERNATING DAILY
     Route: 048
     Dates: start: 20060217, end: 20060711

REACTIONS (1)
  - PORTAL VEIN THROMBOSIS [None]
